FAERS Safety Report 9928379 (Version 1)
Quarter: 2014Q1

REPORT INFORMATION
  Report Type: Spontaneous
  Country: DE (occurrence: DE)
  Receive Date: 20140227
  Receipt Date: 20140227
  Transmission Date: 20141002
  Serious: Yes (Disabling)
  Sender: FDA-Public Use
  Company Number: DE-PFIZER INC-2014053370

PATIENT
  Age: 59 Year
  Sex: Female
  Weight: 55 kg

DRUGS (7)
  1. LYRICA [Suspect]
     Indication: SPINAL FRACTURE
     Dosage: 25 MG, 2X/DAY
     Route: 048
     Dates: start: 201312, end: 201312
  2. LYRICA [Suspect]
     Dosage: 50 MG, 2X/DAY
     Route: 048
     Dates: start: 201312, end: 201401
  3. LYRICA [Suspect]
     Dosage: 25 MG, 2X/DAY
     Route: 048
     Dates: start: 201402
  4. L-THYROXIN [Concomitant]
  5. FEMOSTON CONTI [Concomitant]
  6. ALENDRONIC ACID [Concomitant]
     Dosage: 1 DF, WEEKLY
  7. IBUPROFEN [Concomitant]
     Dosage: TAKEN AS NEEDED

REACTIONS (5)
  - Sensory loss [Not Recovered/Not Resolved]
  - Pain in extremity [Not Recovered/Not Resolved]
  - Feeling hot [Not Recovered/Not Resolved]
  - Hyperaesthesia [Not Recovered/Not Resolved]
  - Stomatitis [Not Recovered/Not Resolved]
